FAERS Safety Report 13815007 (Version 1)
Quarter: 2017Q3

REPORT INFORMATION
  Report Type: Spontaneous
  Country: US (occurrence: US)
  Receive Date: 20170731
  Receipt Date: 20170731
  Transmission Date: 20171127
  Serious: Yes (Life-Threatening)
  Sender: FDA-Public Use
  Company Number: US-BAYER-2017-141442

PATIENT
  Sex: Female

DRUGS (1)
  1. ALEVE [Suspect]
     Active Substance: NAPROXEN SODIUM
     Dosage: 1 DF, ONCE
     Route: 048

REACTIONS (4)
  - Respiratory arrest [Recovered/Resolved]
  - Blood pressure immeasurable [Recovered/Resolved]
  - Anaphylactic shock [Recovered/Resolved]
  - Pulse absent [Recovered/Resolved]
